FAERS Safety Report 7611900-3 (Version None)
Quarter: 2011Q3

REPORT INFORMATION
  Report Type: 
  Country: None (occurrence: None)
  Receive Date: 20110715
  Receipt Date: 20110704
  Transmission Date: 20111222
  Serious: Yes (Other)
  Sender: FDA-Public Use
  Company Number: CA-JNJFOC-20110702146

PATIENT
  Sex: Female
  Weight: 60 kg

DRUGS (4)
  1. BENADRYL [Concomitant]
     Route: 048
  2. REMICADE [Suspect]
     Indication: CROHN'S DISEASE
     Route: 042
  3. REMICADE [Suspect]
     Route: 042
     Dates: end: 20110704
  4. SOLU-CORTEF [Concomitant]
     Route: 042

REACTIONS (8)
  - INFUSION RELATED REACTION [None]
  - ADVERSE DRUG REACTION [None]
  - FLUSHING [None]
  - DYSPNOEA [None]
  - RETCHING [None]
  - COUGH [None]
  - NAUSEA [None]
  - OEDEMA [None]
